FAERS Safety Report 17211921 (Version 1)
Quarter: 2019Q4

REPORT INFORMATION
  Report Type: Spontaneous
  Country: US (occurrence: US)
  Receive Date: 20191230
  Receipt Date: 20191230
  Transmission Date: 20200122
  Serious: No
  Sender: FDA-Public Use
  Company Number: US-ALLERGAN-1905353US

PATIENT
  Age: 68 Year
  Sex: Female

DRUGS (18)
  1. SULFA [Concomitant]
     Active Substance: UNSPECIFIED INGREDIENT
  2. PHENERGAN [Concomitant]
     Active Substance: PROMETHAZINE HYDROCHLORIDE
  3. ZITHROMAX [Concomitant]
     Active Substance: AZITHROMYCIN DIHYDRATE
  4. MORPHINE [Concomitant]
     Active Substance: MORPHINE
  5. NIFEDIPINE. [Concomitant]
     Active Substance: NIFEDIPINE
  6. BYSTOLIC [Suspect]
     Active Substance: NEBIVOLOL HYDROCHLORIDE
     Indication: PRODUCT USED FOR UNKNOWN INDICATION
     Dosage: UNK
     Route: 065
  7. CHLORTHALIDONE. [Concomitant]
     Active Substance: CHLORTHALIDONE
     Dosage: 25 MG, QD
  8. ATENOLOL. [Concomitant]
     Active Substance: ATENOLOL
     Dosage: 100 MG, QAM
  9. ATENOLOL. [Concomitant]
     Active Substance: ATENOLOL
     Dosage: 50 MG, QPM
  10. REPATHA [Concomitant]
     Active Substance: EVOLOCUMAB
     Dosage: 140MG INJ EVERY 2 WEEKS
  11. LIVALO [Concomitant]
     Active Substance: PITAVASTATIN CALCIUM
  12. ESTRADIOL. [Concomitant]
     Active Substance: ESTRADIOL
  13. ERYTHROMYCIN. [Concomitant]
     Active Substance: ERYTHROMYCIN
  14. PICATO [Concomitant]
     Active Substance: INGENOL MEBUTATE
  15. ZETIA [Concomitant]
     Active Substance: EZETIMIBE
     Dosage: 10 MG, QD
  16. HYDROCHLOROTHIAZIDE. [Concomitant]
     Active Substance: HYDROCHLOROTHIAZIDE
  17. LISINOPRIL. [Concomitant]
     Active Substance: LISINOPRIL
  18. STATIN [Concomitant]
     Active Substance: UNSPECIFIED INGREDIENT

REACTIONS (1)
  - Pruritus [Unknown]
